FAERS Safety Report 6061876-8 (Version None)
Quarter: 2009Q1

REPORT INFORMATION
  Report Type: 
  Country: None (occurrence: None)
  Receive Date: 20090202
  Receipt Date: 20090121
  Transmission Date: 20090719
  Serious: Yes (Other)
  Sender: FDA-Public Use
  Company Number: PHHY2009GB02581

PATIENT
  Sex: Female

DRUGS (5)
  1. CLOZARIL [Suspect]
     Dosage: 450 MG/DAY
     Dates: start: 19970723
  2. CLOZAPINE [Suspect]
     Dosage: UNK
     Dates: start: 19970723
  3. AMISULPRIDE [Concomitant]
  4. LITHIUM CARBONATE [Concomitant]
  5. SERTRALINE [Concomitant]

REACTIONS (1)
  - ELECTROCARDIOGRAM QT PROLONGED [None]
